FAERS Safety Report 7964343-7 (Version None)
Quarter: 2011Q4

REPORT INFORMATION
  Report Type: 
  Country: None (occurrence: None)
  Receive Date: 20111208
  Receipt Date: 20111202
  Transmission Date: 20120403
  Serious: Yes (Disabling)
  Sender: FDA-Public Use
  Company Number: US-B.I. PHARMACEUTICALS,INC./RIDGEFIELD-2011-BP-21325BP

PATIENT
  Age: 62 Year
  Sex: Male
  Weight: 101.15 kg

DRUGS (14)
  1. VIT D3 [Concomitant]
     Indication: VITAMIN SUPPLEMENTATION
     Dosage: 1000 U
     Route: 048
  2. TRILIPIX [Concomitant]
     Indication: BLOOD TRIGLYCERIDES INCREASED
     Dosage: 135 MG
     Route: 048
  3. PRADAXA [Suspect]
     Indication: ATRIAL FIBRILLATION
     Dosage: 300 MG
     Route: 048
     Dates: start: 20110701, end: 20110912
  4. AVODART [Concomitant]
     Indication: BENIGN PROSTATIC HYPERPLASIA
     Dosage: 0.5 MG
     Route: 048
  5. MULTAQ [Concomitant]
     Indication: ATRIAL FIBRILLATION
     Dosage: 800 MG
     Route: 048
  6. FISH OIL [Concomitant]
     Indication: SUPPLEMENTATION THERAPY
     Dosage: 1200 MG
     Route: 048
  7. LIPITOR [Concomitant]
     Indication: BLOOD CHOLESTEROL INCREASED
     Dosage: 40 MG
     Route: 048
  8. MULTIVITAMIN SILVER [Concomitant]
     Indication: VITAMIN SUPPLEMENTATION
     Route: 048
  9. ACTOS [Concomitant]
     Indication: DIABETES MELLITUS
     Dosage: 30 MG
     Route: 048
  10. RAMIPRIL [Concomitant]
     Indication: HYPERTENSION
     Dosage: 2.5 MG
     Route: 048
  11. GLIMEPIRIDE [Concomitant]
     Indication: DIABETES MELLITUS
     Dosage: 2 MG
     Route: 048
  12. ASPIRIN [Concomitant]
     Indication: PROPHYLAXIS
     Dosage: 325 MG
     Route: 048
  13. TAMSULOSIN HCL [Concomitant]
     Indication: BENIGN PROSTATIC HYPERPLASIA
     Dosage: 0.4 MG
     Route: 048
  14. DEXILANT [Concomitant]
     Indication: GASTROOESOPHAGEAL REFLUX DISEASE
     Dosage: 30 MG
     Route: 048

REACTIONS (1)
  - ARTHRALGIA [None]
